FAERS Safety Report 10735510 (Version 1)
Quarter: 2015Q1

REPORT INFORMATION
  Report Type: Spontaneous
  Country: SE (occurrence: SE)
  Receive Date: 20150126
  Receipt Date: 20150126
  Transmission Date: 20150721
  Serious: Yes (Life-Threatening, Hospitalization)
  Sender: FDA-Public Use
  Company Number: SE-ROCHE-1524065

PATIENT
  Age: 20 Year
  Sex: Male

DRUGS (8)
  1. ZOLPIDEM [Concomitant]
     Active Substance: ZOLPIDEM\ZOLPIDEM TARTRATE
     Route: 065
  2. CITODON [Suspect]
     Active Substance: ACETAMINOPHEN\CODEINE PHOSPHATE
     Indication: PRODUCT USED FOR UNKNOWN INDICATION
     Route: 048
     Dates: start: 20140117, end: 20140117
  3. PULMICORT TURBUHALER [Concomitant]
     Active Substance: BUDESONIDE
     Route: 065
  4. DEXAMFETAMINE SULFATE [Concomitant]
     Dosage: REPORTED AS : METAMINA
     Route: 065
  5. BRICANYL [Concomitant]
     Active Substance: TERBUTALINE SULFATE
     Route: 065
  6. PRONAXEN [Concomitant]
     Active Substance: NAPROXEN
     Route: 065
  7. DOLCONTIN [Suspect]
     Active Substance: MORPHINE
     Indication: PRODUCT USED FOR UNKNOWN INDICATION
     Route: 048
     Dates: start: 20140117, end: 20140117
  8. IKTORIVIL [Suspect]
     Active Substance: CLONAZEPAM
     Indication: PRODUCT USED FOR UNKNOWN INDICATION
     Route: 048
     Dates: start: 20140117, end: 20150117

REACTIONS (1)
  - Toxicity to various agents [Recovered/Resolved]

NARRATIVE: CASE EVENT DATE: 20140117
